FAERS Safety Report 14928526 (Version 1)
Quarter: 2018Q2

REPORT INFORMATION
  Report Type: Spontaneous
  Country: US (occurrence: US)
  Receive Date: 20180523
  Receipt Date: 20180523
  Transmission Date: 20180711
  Serious: No
  Sender: FDA-Public Use
  Company Number: US-CELGENEUS-USA-20180506997

PATIENT
  Sex: Male

DRUGS (2)
  1. POMALYST [Suspect]
     Active Substance: POMALIDOMIDE
     Indication: PLASMA CELL MYELOMA
     Dosage: 4 MILLIGRAM
     Route: 048
     Dates: start: 20160912
  2. POMALYST [Suspect]
     Active Substance: POMALIDOMIDE
     Indication: PROSTATE CANCER

REACTIONS (5)
  - Hypoaesthesia [Unknown]
  - Pollakiuria [Unknown]
  - Dehydration [Unknown]
  - Muscle tightness [Unknown]
  - Muscle spasms [Unknown]
